FAERS Safety Report 8643726 (Version 2)
Quarter: 2013Q1

REPORT INFORMATION
  Report Type: Spontaneous
  Country: US (occurrence: US)
  Receive Date: 20120629
  Receipt Date: 20130315
  Transmission Date: 20140127
  Serious: Yes (Other)
  Sender: FDA-Public Use
  Company Number: US-ROCHE-1082666

PATIENT
  Age: 14 Year
  Sex: Male
  Weight: 63.56 kg

DRUGS (5)
  1. ACCUTANE [Suspect]
     Indication: ACNE
     Dosage: DOSE: 60 MG PER DAY
     Route: 065
     Dates: start: 1996, end: 1998
  2. ACCUTANE [Suspect]
     Route: 065
     Dates: start: 1999, end: 2001
  3. ACCUTANE [Suspect]
     Route: 065
     Dates: start: 2001, end: 2002
  4. TETRACYCLINE [Concomitant]
  5. BENZOYL PEROXIDE [Concomitant]

REACTIONS (11)
  - Crohn^s disease [Unknown]
  - Inflammatory bowel disease [Unknown]
  - Injury [Unknown]
  - Depression [Unknown]
  - Urticaria [Unknown]
  - Blood triglycerides increased [Unknown]
  - Dermatitis [Unknown]
  - Pharyngitis [Unknown]
  - Laryngitis [Unknown]
  - Upper respiratory tract infection [Unknown]
  - Acne [Unknown]
